FAERS Safety Report 7313554-2 (Version None)
Quarter: 2011Q1

REPORT INFORMATION
  Report Type: 
  Country: None (occurrence: None)
  Receive Date: 20110215
  Receipt Date: 20110215
  Transmission Date: 20110831
  Serious: Yes (Other)
  Sender: FDA-Public Use
  Company Number: None

PATIENT
  Sex: Male
  Weight: 82.5547 kg

DRUGS (1)
  1. CIPROFLOXACIN [Suspect]
     Indication: COLITIS
     Dosage: 1 2 PO
     Route: 048
     Dates: start: 20110213, end: 20110214

REACTIONS (1)
  - TENDONITIS [None]
